FAERS Safety Report 15404016 (Version 1)
Quarter: 2018Q3

REPORT INFORMATION
  Report Type: Spontaneous
  Country: US (occurrence: US)
  Receive Date: 20180919
  Receipt Date: 20180919
  Transmission Date: 20181010
  Serious: No
  Sender: FDA-Public Use
  Company Number: US-AVADEL SPECIALTY PHARMACEUTICALS, LLC-2018AVA00160

PATIENT
  Age: 73 Year
  Sex: Female
  Weight: 52.61 kg

DRUGS (17)
  1. BACLOFEN. [Concomitant]
     Active Substance: BACLOFEN
  2. COENZYME Q10 [Concomitant]
     Active Substance: UBIDECARENONE
  3. BUPROPION. [Concomitant]
     Active Substance: BUPROPION
  4. VITAMIN E [Concomitant]
     Active Substance: .ALPHA.-TOCOPHEROL
  5. LEVOTHYROXINE. [Concomitant]
     Active Substance: LEVOTHYROXINE
  6. ASPIRIN. [Concomitant]
     Active Substance: ASPIRIN
  7. MULTIVITAMIN [Concomitant]
     Active Substance: VITAMINS
  8. ATIVAN [Concomitant]
     Active Substance: LORAZEPAM
  9. VASOTEC [Concomitant]
     Active Substance: ENALAPRIL MALEATE
  10. ZETIA [Concomitant]
     Active Substance: EZETIMIBE
  11. VITAMIN B COMPLEX FOLIC ACID [Concomitant]
  12. NOCTIVA [Suspect]
     Active Substance: DESMOPRESSIN ACETATE
     Indication: NOCTURIA
     Dosage: 0.83 ?G, 1X/DAY 30 MINUTES PRIOR TO BEDTIME
     Route: 045
     Dates: start: 20180626, end: 20180629
  13. VITAMIN B12 [Concomitant]
     Active Substance: CYANOCOBALAMIN
  14. CARDIA XT [Concomitant]
  15. MELATONIN [Concomitant]
     Active Substance: MELATONIN
  16. CRESTOR [Concomitant]
     Active Substance: ROSUVASTATIN CALCIUM
  17. CYMBALTA [Concomitant]
     Active Substance: DULOXETINE HYDROCHLORIDE

REACTIONS (2)
  - Drug ineffective [Recovered/Resolved]
  - Rhinalgia [Unknown]

NARRATIVE: CASE EVENT DATE: 201806
